FAERS Safety Report 6075633-X (Version None)
Quarter: 2009Q1

REPORT INFORMATION
  Report Type: 
  Country: None (occurrence: None)
  Receive Date: 20090212
  Receipt Date: 20081204
  Transmission Date: 20090719
  Serious: Yes (Death, Life-Threatening, Hospitalization)
  Sender: FDA-Public Use
  Company Number: AR-PFIZER INC-2007103112

PATIENT

DRUGS (5)
  1. SUNITINIB MALATE [Suspect]
     Indication: RENAL CELL CARCINOMA
     Dosage: 37.5 MG, 1X/DAY
     Route: 048
     Dates: start: 20071024, end: 20071122
  2. TERAZOSIN HCL [Concomitant]
     Route: 048
     Dates: start: 20010101
  3. KLOSIDOL [Concomitant]
     Route: 048
     Dates: start: 20070920
  4. SPIRONOLACTONE [Concomitant]
     Route: 048
     Dates: start: 20070920
  5. OMEPRAZOLE [Concomitant]
     Route: 048
     Dates: start: 20070920

REACTIONS (1)
  - HYPOTENSION [None]
